FAERS Safety Report 13088954 (Version 1)
Quarter: 2017Q1

REPORT INFORMATION
  Report Type: Spontaneous
  Country: US (occurrence: US)
  Receive Date: 20170104
  Receipt Date: 20170104
  Transmission Date: 20170428
  Serious: No
  Sender: FDA-Public Use
  Company Number: None

PATIENT
  Age: 41 Year
  Sex: Male
  Weight: 67.5 kg

DRUGS (3)
  1. FLORASTOR [Concomitant]
     Active Substance: SACCHAROMYCES CEREVISIAE
  2. CEFDINIR. [Suspect]
     Active Substance: CEFDINIR
     Indication: SINUSITIS
     Dosage: ?          QUANTITY:24 CAPSULE(S);?
     Route: 048
     Dates: start: 20161216, end: 20161227
  3. DEXILANT [Concomitant]
     Active Substance: DEXLANSOPRAZOLE

REACTIONS (2)
  - Urticaria [None]
  - Pruritus [None]

NARRATIVE: CASE EVENT DATE: 20161227
